FAERS Safety Report 7253022-X (Version None)
Quarter: 2011Q1

REPORT INFORMATION
  Report Type: 
  Country: None (occurrence: None)
  Receive Date: 20110129
  Receipt Date: 20100210
  Transmission Date: 20110831
  Serious: No
  Sender: FDA-Public Use
  Company Number: US-ABBOTT-10P-163-0625608-00

PATIENT
  Sex: Female
  Weight: 121.67 kg

DRUGS (5)
  1. NOVOLOG [Concomitant]
     Indication: DIABETES MELLITUS
     Dosage: TID ON A SLIDING SCALE
  2. HUMIRA [Suspect]
     Indication: PRODUCT USED FOR UNKNOWN INDICATION
     Dates: start: 20090108
  3. ACTOS [Concomitant]
     Indication: DIABETES MELLITUS
  4. LANTUS [Concomitant]
     Indication: DIABETES MELLITUS
     Dosage: AT BEDTIME
  5. METFORMIN [Concomitant]
     Indication: DIABETES MELLITUS
     Dosage: TID

REACTIONS (1)
  - BLOOD GLUCOSE INCREASED [None]
